FAERS Safety Report 15036383 (Version 1)
Quarter: 2018Q2

REPORT INFORMATION
  Report Type: Spontaneous
  Country: BR (occurrence: BR)
  Receive Date: 20180620
  Receipt Date: 20180620
  Transmission Date: 20180711
  Serious: Yes (Death)
  Sender: FDA-Public Use
  Company Number: BR-PURDUE-GBR-2018-0056760

PATIENT
  Age: 100 Year
  Sex: Female

DRUGS (1)
  1. RESTIVA [Suspect]
     Active Substance: BUPRENORPHINE
     Indication: PAIN
     Dosage: 1 PATCH, WEEKLY (10 MG STRENGTH)
     Route: 062

REACTIONS (2)
  - Cardiac arrest [Fatal]
  - Infection [Fatal]
